FAERS Safety Report 7223411-8 (Version None)
Quarter: 2011Q1

REPORT INFORMATION
  Report Type: 
  Country: None (occurrence: None)
  Receive Date: 20110112
  Receipt Date: 20100621
  Transmission Date: 20110831
  Serious: No
  Sender: FDA-Public Use
  Company Number: US-ALLERGAN-1008065US

PATIENT
  Sex: Male

DRUGS (3)
  1. UNSPECIFIED ANTIBIOTIC [Concomitant]
  2. UNSPECIFIED OPHTHALMIC STEROID [Concomitant]
  3. RESTASIS [Suspect]
     Indication: DRY EYE
     Dosage: 1 GTT, Q12H
     Route: 047

REACTIONS (2)
  - DIZZINESS [None]
  - VISION BLURRED [None]
